FAERS Safety Report 5246355-X (Version None)
Quarter: 2007Q1

REPORT INFORMATION
  Report Type: 
  Country: None (occurrence: None)
  Receive Date: 20061201
  Receipt Date: 20060830
  Transmission Date: 20070707
  Serious: No
  Sender: FDA-Public Use
  Company Number: 2006PV020487

PATIENT
  Age: 49 Year
  Sex: Male
  Weight: 149.687 kg

DRUGS (5)
  1. BYETTA [Suspect]
     Indication: DIABETES MELLITUS NON-INSULIN-DEPENDENT
     Dosage: 10; 10; 5 MCG; BID; SC
     Route: 058
     Dates: start: 20060607, end: 20060701
  2. BYETTA [Suspect]
     Indication: DIABETES MELLITUS NON-INSULIN-DEPENDENT
     Dosage: 10; 10; 5 MCG; BID; SC
     Route: 058
     Dates: start: 20060701, end: 20060826
  3. BYETTA [Suspect]
     Indication: DIABETES MELLITUS NON-INSULIN-DEPENDENT
     Dosage: 10; 10; 5 MCG; BID; SC
     Route: 058
     Dates: start: 20060830
  4. METFORMIN HCL [Concomitant]
  5. GLIMEPIRIDE [Concomitant]

REACTIONS (3)
  - ABDOMINAL PAIN UPPER [None]
  - BLOOD GLUCOSE INCREASED [None]
  - NAUSEA [None]
